FAERS Safety Report 8640160 (Version 2)
Quarter: 2013Q2

REPORT INFORMATION
  Report Type: Report from Study
  Country: US (occurrence: US)
  Receive Date: 20120628
  Receipt Date: 20130627
  Transmission Date: 20140414
  Serious: Yes (Other)
  Sender: FDA-Public Use
  Company Number: US-MYLANLABS-2011S1025929

PATIENT
  Age: 20 Year
  Sex: Female
  Weight: 52.16 kg

DRUGS (5)
  1. CLOZAPINE TABLETS [Suspect]
     Indication: SCHIZOAFFECTIVE DISORDER
     Route: 048
     Dates: start: 201110, end: 20120116
  2. CLOZAPINE TABLETS [Suspect]
     Indication: SCHIZOAFFECTIVE DISORDER
     Route: 048
     Dates: start: 20120120
  3. PROZAC [Concomitant]
     Route: 048
  4. DEPAKOTE [Concomitant]
     Dosage: 500MG TABLETS
     Route: 048
  5. BENZTROPINE [Concomitant]
     Dosage: 2MG TABLETS
     Route: 048

REACTIONS (2)
  - Granulocytopenia [Not Recovered/Not Resolved]
  - Leukopenia [Recovered/Resolved]
